FAERS Safety Report 6780772-1 (Version None)
Quarter: 2010Q2

REPORT INFORMATION
  Report Type: 
  Country: None (occurrence: None)
  Receive Date: 20100621
  Receipt Date: 20100617
  Transmission Date: 20101027
  Serious: Yes (Death)
  Sender: FDA-Public Use
  Company Number: CO-JNJFOC-20100605857

PATIENT
  Age: 46 Year
  Sex: Male

DRUGS (1)
  1. RISPERDAL CONSTA [Suspect]
     Indication: MENTAL RETARDATION
     Route: 065

REACTIONS (3)
  - DEATH [None]
  - OFF LABEL USE [None]
  - URINARY TRACT INFECTION [None]
